FAERS Safety Report 8870158 (Version 1)
Quarter: 2012Q4

REPORT INFORMATION
  Report Type: 
  Country: US (occurrence: US)
  Receive Date: 20121026
  Receipt Date: 20121026
  Transmission Date: 20130627
  Serious: No
  Sender: FDA-Public Use
  Company Number: US-AMGEN-USASP2012043878

PATIENT
  Sex: Male
  Weight: 67 kg

DRUGS (5)
  1. ENBREL [Suspect]
     Indication: PRODUCT USED FOR UNKNOWN INDICATION
     Dosage: 50 mg, qwk
  2. LISINOPRIL [Concomitant]
     Dosage: 5 mg, UNK
  3. SIMVASTATIN [Concomitant]
     Dosage: 5 mg, UNK
  4. CALCIUM                            /00060701/ [Concomitant]
     Dosage: 750 mg, UNK
  5. VITAMIN D /00107901/ [Concomitant]
     Dosage: 400 unit, UNK

REACTIONS (3)
  - Injection site reaction [Recovered/Resolved]
  - Injection site erythema [Recovered/Resolved]
  - Injection site pain [Recovered/Resolved]
